FAERS Safety Report 4567821-6 (Version None)
Quarter: 2005Q1

REPORT INFORMATION
  Report Type: 
  Country: None (occurrence: None)
  Receive Date: 20050202
  Receipt Date: 20041013
  Transmission Date: 20050727
  Serious: No
  Sender: FDA-Public Use
  Company Number: US-GLAXOSMITHKLINE-A0529691A

PATIENT
  Age: 57 Year
  Sex: Female

DRUGS (6)
  1. AVANDAMET [Suspect]
     Dosage: 2MG TWICE PER DAY
     Route: 048
     Dates: start: 20041012
  2. PRANDIN [Concomitant]
  3. SYNTHROID [Concomitant]
  4. LOTREL [Concomitant]
  5. PRILOSEC [Concomitant]
  6. CARDURA [Concomitant]

REACTIONS (2)
  - FATIGUE [None]
  - STOMACH DISCOMFORT [None]
